FAERS Safety Report 7777338-3 (Version None)
Quarter: 2011Q3

REPORT INFORMATION
  Report Type: 
  Country: None (occurrence: None)
  Receive Date: 20110926
  Receipt Date: 20110914
  Transmission Date: 20111222
  Serious: Yes (Hospitalization)
  Sender: FDA-Public Use
  Company Number: PHHO2011NO14504

PATIENT
  Sex: Male
  Weight: 67 kg

DRUGS (7)
  1. MYFORTIC [Suspect]
     Dosage: 360 MG, BID
     Route: 048
  2. VALCYTE [Suspect]
     Indication: PROPHYLAXIS
  3. PROGRAF [Suspect]
     Indication: RENAL TRANSPLANT
     Dosage: 5 MG, QD
     Dates: start: 20110504
  4. MYFORTIC [Suspect]
     Indication: IMMUNOSUPPRESSION
     Dosage: 180 MG, BID
     Dates: start: 20110504, end: 20110510
  5. MYFORTIC [Suspect]
     Dosage: 180 MG, BID
  6. BACTRIM [Suspect]
  7. PREDNISOLONE [Concomitant]
     Indication: IMMUNOSUPPRESSION
     Dosage: 7.5 MG, QD
     Dates: start: 20110406

REACTIONS (2)
  - BACTERIAL INFECTION [None]
  - NEUTROPENIA [None]
